FAERS Safety Report 13387499 (Version 1)
Quarter: 2017Q1

REPORT INFORMATION
  Report Type: Spontaneous
  Country: US (occurrence: US)
  Receive Date: 20170330
  Receipt Date: 20170330
  Transmission Date: 20170429
  Serious: No
  Sender: FDA-Public Use
  Company Number: US-MYLANLABS-2016M1018729

PATIENT
  Age: 51 Year
  Sex: Female

DRUGS (1)
  1. ESTRADIOL TRANSDERMAL SYSTEM [Suspect]
     Active Substance: ESTRADIOL
     Indication: HORMONE REPLACEMENT THERAPY
     Dosage: 0.1 MG/DAY, CHANGE Q WEEK
     Route: 062
     Dates: start: 20160504, end: 20160504

REACTIONS (3)
  - Application site erythema [Recovered/Resolved]
  - Application site pruritus [Recovered/Resolved]
  - Wheezing [Recovered/Resolved]

NARRATIVE: CASE EVENT DATE: 20160504
